FAERS Safety Report 8741505 (Version 2)
Quarter: 2012Q4

REPORT INFORMATION
  Report Type: 
  Country: US (occurrence: US)
  Receive Date: 20120824
  Receipt Date: 20120918
  Transmission Date: 20130627
  Serious: No
  Sender: FDA-Public Use
  Company Number: US-ASTRAZENECA-2012SE08340

PATIENT
  Age: 78 Year
  Sex: Female
  Weight: 77.1 kg

DRUGS (2)
  1. SYMBICORT [Suspect]
     Dosage: 80/4.5 MCG, TWO PUFFS,  TWO TIMES A DAY
     Route: 055
     Dates: start: 20120131
  2. SYMBICORT [Suspect]
     Dosage: 80/4.5 MCG, ONE PUFF,  MORNING, UNKNOWN
     Route: 055

REACTIONS (3)
  - Dyspnoea [Unknown]
  - Diabetes mellitus [Unknown]
  - Drug dose omission [Unknown]
